FAERS Safety Report 9042331 (Version 1)
Quarter: 2013Q1

REPORT INFORMATION
  Report Type: Report from Study
  Country: US (occurrence: US)
  Receive Date: 20130129
  Receipt Date: 20130129
  Transmission Date: 20140127
  Serious: No
  Sender: FDA-Public Use
  Company Number: US-ABBOTT-12P-163-0908475-00

PATIENT
  Sex: Male
  Weight: 70.37 kg

DRUGS (9)
  1. HUMIRA 40 MG/ 0.8 ML PRE-FILLED SYRINGE [Suspect]
     Indication: CROHN^S DISEASE
     Dates: start: 201008
  2. PENTASA [Concomitant]
     Indication: CROHN^S DISEASE
  3. NEURONTIN [Concomitant]
     Indication: PRODUCT USED FOR UNKNOWN INDICATION
  4. PRAMIPEXOLE [Concomitant]
     Indication: PRODUCT USED FOR UNKNOWN INDICATION
  5. FINASTERIDE [Concomitant]
     Indication: PRODUCT USED FOR UNKNOWN INDICATION
  6. TERAZOSIN [Concomitant]
     Indication: PRODUCT USED FOR UNKNOWN INDICATION
  7. CALCIUM [Concomitant]
     Indication: MINERAL SUPPLEMENTATION
  8. B COMPLEX [Concomitant]
     Indication: VITAMIN SUPPLEMENTATION
  9. FISH OIL [Concomitant]
     Indication: SUPPLEMENTATION THERAPY

REACTIONS (3)
  - Tooth disorder [Unknown]
  - Device failure [Not Recovered/Not Resolved]
  - Dental caries [Not Recovered/Not Resolved]
